FAERS Safety Report 25307532 (Version 1)
Quarter: 2025Q2

REPORT INFORMATION
  Report Type: Spontaneous
  Country: JP (occurrence: JP)
  Receive Date: 20250513
  Receipt Date: 20250513
  Transmission Date: 20250717
  Serious: Yes (Death, Other)
  Sender: ELI LILLY AND COMPANY
  Company Number: JP-NShinyaku-EVA202506453ZZLILLY

PATIENT
  Age: 68 Year
  Sex: Female

DRUGS (8)
  1. TADALAFIL [Suspect]
     Active Substance: TADALAFIL
     Indication: Pulmonary arterial hypertension
     Dosage: 40 MG, DAILY
     Route: 048
  2. BERAPROST SODIUM [Concomitant]
     Active Substance: BERAPROST SODIUM
     Indication: Pulmonary arterial hypertension
     Dosage: 120 UG, DAILY
     Route: 048
  3. AMBRISENTAN [Concomitant]
     Active Substance: AMBRISENTAN
     Indication: Pulmonary arterial hypertension
     Dosage: 5 MG, DAILY
     Route: 048
  4. EPOPROSTENOL SODIUM [Concomitant]
     Active Substance: EPOPROSTENOL SODIUM
     Indication: Pulmonary arterial hypertension
     Route: 042
  5. EPOPROSTENOL SODIUM [Concomitant]
     Active Substance: EPOPROSTENOL SODIUM
     Route: 042
  6. EPOPROSTENOL SODIUM [Concomitant]
     Active Substance: EPOPROSTENOL SODIUM
     Route: 042
  7. EPOPROSTENOL SODIUM [Concomitant]
     Active Substance: EPOPROSTENOL SODIUM
     Route: 042
  8. EPOPROSTENOL SODIUM [Concomitant]
     Active Substance: EPOPROSTENOL SODIUM
     Route: 042

REACTIONS (5)
  - Death [Fatal]
  - Pulmonary haemorrhage [Unknown]
  - Oxygen saturation decreased [Unknown]
  - Hypoxic-ischaemic encephalopathy [Unknown]
  - Seizure [Unknown]
